FAERS Safety Report 17389181 (Version 4)
Quarter: 2021Q3

REPORT INFORMATION
  Report Type: Report from Study
  Country: US (occurrence: US)
  Receive Date: 20200206
  Receipt Date: 20210909
  Transmission Date: 20211014
  Serious: Yes (Hospitalization)
  Sender: FDA-Public Use
  Company Number: NVSC2020US024561

PATIENT
  Age: 73 Year
  Sex: Female
  Weight: 51.7 kg

DRUGS (4)
  1. REVATIO [Concomitant]
     Active Substance: SILDENAFIL CITRATE
     Indication: PRODUCT USED FOR UNKNOWN INDICATION
     Dosage: UNK
     Route: 065
  2. TREPROSTINIL. [Suspect]
     Active Substance: TREPROSTINIL
     Indication: PULMONARY ARTERIAL HYPERTENSION
     Dosage: UNK  (56 NG/KG/MIN, CONTINUOUS)
     Route: 042
     Dates: start: 20190418
  3. TREPROSTINIL. [Suspect]
     Active Substance: TREPROSTINIL
     Dosage: UNK  (56 NG/KG/MIN, CONTINUOUS)
     Route: 042
     Dates: start: 20190418
  4. OPSUMIT [Concomitant]
     Active Substance: MACITENTAN
     Indication: PRODUCT USED FOR UNKNOWN INDICATION
     Dosage: UNK
     Route: 065

REACTIONS (5)
  - Rhinorrhoea [Unknown]
  - Cellulitis [Unknown]
  - Localised infection [Unknown]
  - Sneezing [Unknown]
  - Fall [Unknown]

NARRATIVE: CASE EVENT DATE: 20210806
